FAERS Safety Report 8778757 (Version 1)
Quarter: 2012Q4

REPORT INFORMATION
  Report Type: 
  Country: US (occurrence: US)
  Receive Date: 20120912
  Receipt Date: 20120912
  Transmission Date: 20130627
  Serious: No
  Sender: FDA-Public Use
  Company Number: US-PFIZER INC-2012223713

PATIENT
  Sex: Female

DRUGS (8)
  1. PRISTIQ [Suspect]
     Indication: DEPRESSION
     Dosage: 50 mg, daily
     Route: 048
     Dates: start: 20120908
  2. PRISTIQ [Suspect]
     Indication: ANXIETY
  3. PRISTIQ [Suspect]
     Indication: MOOD SWINGS
  4. VILAZODONE HYDROCHLORIDE [Suspect]
     Indication: DEPRESSION
     Dosage: 40 mg, daily
     Route: 048
     Dates: start: 20111116, end: 201207
  5. VILAZODONE HYDROCHLORIDE [Suspect]
     Indication: ANXIETY
  6. VILAZODONE HYDROCHLORIDE [Suspect]
     Indication: MOOD SWINGS
  7. ARMOUR THYROID [Concomitant]
     Indication: THYROID DISORDER
     Dosage: 30 mg,daily
     Route: 048
     Dates: start: 2012
  8. ARMOUR THYROID [Concomitant]
     Indication: THYROIDECTOMY

REACTIONS (3)
  - Weight increased [Recovered/Resolved]
  - Fatigue [Unknown]
  - Somnolence [Unknown]
